FAERS Safety Report 7378005-0 (Version None)
Quarter: 2011Q1

REPORT INFORMATION
  Report Type: 
  Country: None (occurrence: None)
  Receive Date: 20110328
  Receipt Date: 20110324
  Transmission Date: 20110831
  Serious: Yes (Other)
  Sender: FDA-Public Use
  Company Number: FI-PFIZER INC-2011027488

PATIENT
  Age: 48 Year
  Sex: Male

DRUGS (9)
  1. TRAMADOL HCL [Suspect]
     Indication: PAIN
     Dosage: UNK
     Route: 030
     Dates: start: 20110207, end: 20110208
  2. BISOPROLOL FUMARATE [Concomitant]
  3. MAREVAN ^ORION^ [Concomitant]
  4. LITO [Concomitant]
  5. VITAMIN D [Concomitant]
  6. LYRICA [Suspect]
     Dosage: 1050 MG, DAILY
     Route: 048
     Dates: start: 20110101
  7. LYRICA [Suspect]
     Indication: PAIN
     Dosage: 300 MG, 2X/DAY
     Route: 048
     Dates: start: 20110205, end: 20110101
  8. ABSENOR [Concomitant]
  9. LANTUS [Concomitant]

REACTIONS (6)
  - BLOOD PRESSURE ABNORMAL [None]
  - NAUSEA [None]
  - MOOD ALTERED [None]
  - HEART RATE ABNORMAL [None]
  - EUPHORIC MOOD [None]
  - VOMITING [None]
